FAERS Safety Report 16866908 (Version 3)
Quarter: 2019Q4

REPORT INFORMATION
  Report Type: Spontaneous
  Country: US (occurrence: US)
  Receive Date: 20190930
  Receipt Date: 20191121
  Transmission Date: 20200122
  Serious: Yes (Hospitalization, Other)
  Sender: FDA-Public Use
  Company Number: US-HORIZON-PRO-0210-2019

PATIENT
  Age: 19 Year
  Sex: Female

DRUGS (8)
  1. LANTUS [Concomitant]
     Active Substance: INSULIN GLARGINE
  2. RENVELA [Concomitant]
     Active Substance: SEVELAMER CARBONATE
  3. TYLENOL [Concomitant]
     Active Substance: ACETAMINOPHEN
  4. PROCYSBI [Suspect]
     Active Substance: CYSTEAMINE BITARTRATE
     Indication: CYSTINOSIS
     Dosage: 150MG BY MOUTH TWICE DAILY IN THE MORNING AND EVENING
     Route: 048
     Dates: start: 2017, end: 201908
  5. ONDANSETRON [Concomitant]
     Active Substance: ONDANSETRON
  6. BASAGLAR [Concomitant]
     Active Substance: INSULIN GLARGINE
  7. LEVOTHYROXINE. [Concomitant]
     Active Substance: LEVOTHYROXINE
  8. ZOFRAN [Concomitant]
     Active Substance: ONDANSETRON HYDROCHLORIDE

REACTIONS (5)
  - Dialysis [Unknown]
  - End stage renal disease [Unknown]
  - Hernia [Unknown]
  - Vomiting [Not Recovered/Not Resolved]
  - Gastrooesophageal reflux disease [Not Recovered/Not Resolved]

NARRATIVE: CASE EVENT DATE: 201903
